FAERS Safety Report 10404449 (Version 1)
Quarter: 2014Q2

REPORT INFORMATION
  Report Type: Spontaneous
  Country: US (occurrence: None)
  Receive Date: 20140418
  Receipt Date: 20140418
  Transmission Date: 20141212
  Serious: Yes (Other)
  Sender: FDA-Public Use
  Company Number: PHEH2013US025490

PATIENT
  Age: 21 Year
  Sex: Female
  Weight: 49 kg

DRUGS (27)
  1. TOBI PODHALER [Suspect]
     Indication: CYSTIC FIBROSIS
     Route: 055
     Dates: start: 20130920
  2. XOPENEX (LEVOSALBUTAMOL HYDROCHLORIDE) AEROSOL [Concomitant]
  3. XOPENEX (LEVOSALBUTAMOL HYDROCHLORIDE) [Concomitant]
  4. PULMOZYME (DORNASE ALFA) [Concomitant]
  5. PULMOZYME (DORNASE ALFA) [Concomitant]
  6. CAYSTON AZTREONAM LYSINE) [Concomitant]
  7. ADVAIR HFA (FLUTICASONE PROPIONATE, SALMETEROL XINAFOATE), [Concomitant]
  8. CREON (PANCREATIN) [Concomitant]
  9. ADEK (COLECALCIFEROL , MENADIOL, RETINOL PALMITATE, TOCOPHERYL ACETATE) [Concomitant]
  10. NASONEX (MOMETASONE FUROATE) [Concomitant]
  11. MUCINEX (GUAIFENESIN) [Concomitant]
  12. MUCUS RELIEF (GUAIFENESIN) [Concomitant]
  13. VEST / (BORIC ACID, ZINC SULFATE) [Concomitant]
  14. ADVAIR (FLUTICASONE PROPIONATE, SALMETEROL XINAFOATE) [Concomitant]
  15. DOMPERIDONE [Concomitant]
  16. XOLAIR (OMALIZUMAB) [Concomitant]
  17. XOLAIR (OMALIZUMAB) [Concomitant]
  18. XOLAIR (OMALIZUMAB) [Concomitant]
  19. ITRACONAZOLE [Concomitant]
  20. IPRATROPIUM [Concomitant]
  21. AFRIN / (BENZALKONIUM CHLORIDE, GLYCINE, OXYMETAZOLINE HYDROCHLORIDE, PHENYLMERCURIC ACETATE, SOBITOL) [Concomitant]
  22. INFLUENZA VACCINE [Concomitant]
  23. INFLUENZA VACCINE [Concomitant]
  24. LEVAQUIN (LEVOFLOXACIN) [Concomitant]
  25. CEFTAZIDIME [Concomitant]
  26. SODIUM BICARBONATE [Concomitant]
  27. PNEUMOCOCCAL VACCINE [Concomitant]

REACTIONS (33)
  - Haemoptysis [None]
  - Increased bronchial secretion [None]
  - Asthma [None]
  - Hypertension [None]
  - Heart rate increased [None]
  - Weight decreased [None]
  - Gastrooesophageal reflux disease [None]
  - Bronchopulmonary aspergillosis allergic [None]
  - Adrenal insufficiency [None]
  - Rhinorrhoea [None]
  - Pain [None]
  - Leukocytosis [None]
  - Anaemia [None]
  - Neutrophilia [None]
  - Thrombocytosis [None]
  - Blood glucose decreased [None]
  - Blood creatinine decreased [None]
  - Blood urea nitrogen/creatinine ratio decreased [None]
  - Polyuria [None]
  - Thirst [None]
  - Nasopharyngitis [None]
  - Bacterial test positive [None]
  - Obstructive airways disorder [None]
  - Chronic sinusitis [None]
  - Chest pain [None]
  - Cough [None]
  - Productive cough [None]
  - Rales [None]
  - Hypersensitivity [None]
  - Viral upper respiratory tract infection [None]
  - Dizziness [None]
  - Pyrexia [None]
  - Cystic fibrosis [None]
